FAERS Safety Report 4461466-4 (Version None)
Quarter: 2004Q3

REPORT INFORMATION
  Report Type: 
  Country: None (occurrence: None)
  Receive Date: 20040924
  Receipt Date: 20040831
  Transmission Date: 20050211
  Serious: Yes (Death)
  Sender: FDA-Public Use
  Company Number: 3002808337-2004-00001

PATIENT
  Age: 86 Year
  Sex: Female

DRUGS (4)
  1. TERUFLEX 500 ML BLOOD BAG W/70ML CPD 111 ML OPTISOL [Suspect]
     Indication: PACKED RED BLOOD CELL TRANSFUSION
     Dosage: 1 UNIT AS-5 LR RBC
     Dates: start: 20040820
  2. PALL DOCKABLE LEUKOREDUCITON (LR) FILTER + STORAGE BAG [Concomitant]
  3. PDI ARM PREP SCRUB [Concomitant]
  4. TERUMO STERILE CONNECTING DEVICE [Concomitant]

REACTIONS (5)
  - BACTERIAL INFECTION [None]
  - DEVICE FAILURE [None]
  - PHARMACEUTICAL PRODUCT COMPLAINT [None]
  - SEPTIC SHOCK [None]
  - TRANSFUSION REACTION [None]
